FAERS Safety Report 8436849-8 (Version None)
Quarter: 2012Q2

REPORT INFORMATION
  Report Type: 
  Country: None (occurrence: None)
  Receive Date: 20120614
  Receipt Date: 20120608
  Transmission Date: 20120825
  Serious: Yes (Death, Hospitalization, Other)
  Sender: FDA-Public Use
  Company Number: US-PFIZER INC-2009314332

PATIENT
  Sex: Male

DRUGS (6)
  1. XANAX [Concomitant]
     Indication: ANXIETY
     Dosage: 0.5 MG, AS NEEDED
  2. KEFLEX [Concomitant]
     Indication: INFECTION
     Dosage: UNK
     Dates: start: 20030206, end: 20030207
  3. ZANTAC [Concomitant]
     Indication: PROPHYLAXIS
     Dosage: UNK
  4. VICODIN [Concomitant]
     Indication: PAIN
     Dosage: UNK
  5. DILANTIN-125 [Suspect]
     Dosage: 100 MG, 2X/DAY
     Dates: end: 20030215
  6. DILANTIN-125 [Suspect]
     Indication: CONVULSION
     Dosage: 100 MG, 3X/DAY
     Route: 048
     Dates: start: 20030128

REACTIONS (1)
  - STEVENS-JOHNSON SYNDROME [None]
